FAERS Safety Report 21852628 (Version 4)
Quarter: 2023Q1

REPORT INFORMATION
  Report Type: Report from Study
  Country: ES (occurrence: ES)
  Receive Date: 20230112
  Receipt Date: 20230206
  Transmission Date: 20230417
  Serious: Yes (Life-Threatening, Hospitalization)
  Sender: FDA-Public Use
  Company Number: ES-ABBVIE-4267044

PATIENT
  Age: 70 Year
  Sex: Female
  Weight: 73 kg

DRUGS (3)
  1. CARBIDOPA\LEVODOPA [Suspect]
     Active Substance: CARBIDOPA\LEVODOPA
     Indication: Parkinson^s disease
     Route: 050
     Dates: start: 20220420
  2. CARBIDOPA\LEVODOPA [Suspect]
     Active Substance: CARBIDOPA\LEVODOPA
  3. DIAZEPAM [Suspect]
     Active Substance: DIAZEPAM
     Indication: Product used for unknown indication
     Route: 065

REACTIONS (7)
  - Suicide attempt [Not Recovered/Not Resolved]
  - Mobility decreased [Unknown]
  - Intentional product misuse [Unknown]
  - Suicide attempt [Not Recovered/Not Resolved]
  - Pyrexia [Unknown]
  - Bronchitis [Unknown]
  - Hallucination [Unknown]

NARRATIVE: CASE EVENT DATE: 20230101
